FAERS Safety Report 8177242-5 (Version None)
Quarter: 2012Q1

REPORT INFORMATION
  Report Type: 
  Country: None (occurrence: None)
  Receive Date: 20120301
  Receipt Date: 20120220
  Transmission Date: 20120608
  Serious: Yes (Hospitalization)
  Sender: FDA-Public Use
  Company Number: GB-BRISTOL-MYERS SQUIBB COMPANY-16407736

PATIENT
  Age: 48 Year
  Sex: Male

DRUGS (3)
  1. DIDANOSINE [Suspect]
     Indication: HIV INFECTION
     Dates: end: 20070101
  2. PROPRANOLOL [Suspect]
  3. ATENOLOL [Suspect]
     Indication: MYOCARDIAL ISCHAEMIA
     Dates: start: 20050101, end: 20070101

REACTIONS (4)
  - PORTAL HYPERTENSIVE GASTROPATHY [None]
  - LIVER INJURY [None]
  - DUODENITIS [None]
  - SCLEROSING ENCAPSULATING PERITONITIS [None]
